FAERS Safety Report 21226031 (Version 1)
Quarter: 2022Q3

REPORT INFORMATION
  Report Type: Spontaneous
  Country: FR (occurrence: FR)
  Receive Date: 20220818
  Receipt Date: 20220818
  Transmission Date: 20221027
  Serious: Yes (Other)
  Sender: FDA-Public Use
  Company Number: None

PATIENT
  Age: 26 Year
  Sex: Female
  Weight: 71 kg

DRUGS (2)
  1. NEXPLANON [Interacting]
     Active Substance: ETONOGESTREL
     Dosage: IMPLANT FOR SUBCUTANEOUS USE
  2. COMIRNATY [Suspect]
     Active Substance: TOZINAMERAN
     Indication: COVID-19 immunisation
     Dosage: 30 MICROGRAM SINGLE DOSE
     Route: 030
     Dates: start: 20211230, end: 20211230

REACTIONS (2)
  - Heavy menstrual bleeding [Not Recovered/Not Resolved]
  - Premenstrual syndrome [Not Recovered/Not Resolved]

NARRATIVE: CASE EVENT DATE: 20220120
